FAERS Safety Report 4707423-1 (Version None)
Quarter: 2005Q3

REPORT INFORMATION
  Report Type: 
  Country: None (occurrence: None)
  Receive Date: 20050701
  Receipt Date: 20050620
  Transmission Date: 20060218
  Serious: Yes (Other)
  Sender: FDA-Public Use
  Company Number: 215467

PATIENT
  Age: 65 Year
  Sex: Male
  Weight: 41.5 kg

DRUGS (7)
  1. RITUXAN [Suspect]
     Indication: NON-HODGKIN'S LYMPHOMA
     Dosage: 500 MG, IV DRIP
     Route: 041
     Dates: start: 20011015, end: 20020121
  2. PARAPLATIN [Suspect]
     Indication: NON-HODGKIN'S LYMPHOMA
     Dosage: 500 MG, IV DRIP
     Route: 041
     Dates: start: 20011015, end: 20020125
  3. NOVANTRONE [Suspect]
     Indication: NON-HODGKIN'S LYMPHOMA
     Dosage: 8 MG
     Dates: start: 20011015, end: 20020125
  4. PREDONINE (PREDNISOLONE SODIUM SUCCINATE, PREDNISOLONE, PREDNISOLONE A [Suspect]
     Indication: NON-HODGKIN'S LYMPHOMA
     Dosage: 70 MG, X5, ORAL
     Route: 048
     Dates: start: 20011015, end: 20020125
  5. VEPESID [Suspect]
     Indication: NON-HODGKIN'S LYMPHOMA
     Dosage: 150 MG, X5, ORAL
     Route: 048
     Dates: start: 20011015, end: 20020125
  6. LOXONIN (LOXOPROFEN SODIUM) [Concomitant]
  7. POLARAMINE [Concomitant]

REACTIONS (4)
  - NEUTROPHIL PERCENTAGE DECREASED [None]
  - NEUTROPHIL PERCENTAGE INCREASED [None]
  - PLATELET COUNT DECREASED [None]
  - WHITE BLOOD CELL COUNT DECREASED [None]
